FAERS Safety Report 25188005 (Version 1)
Quarter: 2025Q2

REPORT INFORMATION
  Report Type: Spontaneous
  Country: US (occurrence: US)
  Receive Date: 20250411
  Receipt Date: 20250411
  Transmission Date: 20250716
  Serious: No
  Sender: KINIKSA PHARMACEUTICALS
  Company Number: US-Kiniksa Pharmaceuticals Ltd.-2025KPU000600

PATIENT
  Age: 45 Year
  Sex: Female

DRUGS (2)
  1. ARCALYST [Suspect]
     Active Substance: RILONACEPT
     Route: 058
     Dates: start: 20250218, end: 20250218
  2. ARCALYST [Suspect]
     Active Substance: RILONACEPT
     Route: 058
     Dates: start: 202502

REACTIONS (21)
  - Dizziness [Unknown]
  - Fear of injection [Unknown]
  - Sedation [Unknown]
  - Product dose omission in error [Recovered/Resolved]
  - Chest pain [Not Recovered/Not Resolved]
  - Pericarditis [Unknown]
  - Social problem [Unknown]
  - Loss of personal independence in daily activities [Unknown]
  - Injection site rash [Unknown]
  - Injection site swelling [Unknown]
  - Injection site erythema [Not Recovered/Not Resolved]
  - Injection site warmth [Not Recovered/Not Resolved]
  - Injection site pruritus [Not Recovered/Not Resolved]
  - Injection site pain [Not Recovered/Not Resolved]
  - Injection site hypertrophy [Not Recovered/Not Resolved]
  - Fatigue [Unknown]
  - Injection site discolouration [Unknown]
  - Injection site exfoliation [Unknown]
  - Injection site scar [Unknown]
  - Injection site rash [Unknown]
  - Rash [Unknown]

NARRATIVE: CASE EVENT DATE: 20250218
